FAERS Safety Report 26202626 (Version 1)
Quarter: 2025Q4

REPORT INFORMATION
  Report Type: Spontaneous
  Country: GB (occurrence: GB)
  Receive Date: 20251226
  Receipt Date: 20251226
  Transmission Date: 20260117
  Serious: Yes (Congenital Anomaly, Other)
  Sender: Kenvue
  Company Number: None

PATIENT

DRUGS (17)
  1. ACETAMINOPHEN [Suspect]
     Active Substance: ACETAMINOPHEN
     Indication: Product used for unknown indication
     Dosage: USED IN 1ST TRIMESTER ONLY
  2. FOLIC ACID [Suspect]
     Active Substance: FOLIC ACID
     Indication: Vitamin supplementation
     Dosage: 400 MICROGRAM
  3. BECLOMETHASONE DIPROPIONATE [Suspect]
     Active Substance: BECLOMETHASONE DIPROPIONATE
     Indication: Asthma
     Dosage: 200 MICROGRAM, TWICE A DAY
  4. DULOXETINE [Suspect]
     Active Substance: DULOXETINE
     Indication: Depression
     Dosage: 60 MILLIGRAM DAILY
  5. MIRTAZAPINE [Suspect]
     Active Substance: MIRTAZAPINE
     Indication: Depression
     Dosage: 45 MILLIGRAM, ONCE A DAY (AT NIGHT)
  6. QUETIAPINE [Suspect]
     Active Substance: QUETIAPINE
     Indication: Anxiety
     Dosage: 50 MILLIGRAM, ONCE A DAY (AT NIGHT)
  7. VITAMIN D3 [Suspect]
     Active Substance: CHOLECALCIFEROL
     Indication: Pregnancy
     Dosage: 400 UNITS, ONCE A DAY (ONCE DAILY)
  8. ENOXAPARIN SODIUM [Suspect]
     Active Substance: ENOXAPARIN SODIUM
     Indication: Pregnancy with advanced maternal age
     Dosage: 40 MILLIGRAM, ONCE A DAY, IN 2ND AND 3RD TRIMESTERS
  9. LACTULOSE [Suspect]
     Active Substance: LACTULOSE
     Indication: Constipation
     Dosage: 2.5 MILLILITER, TWICE A DAY
  10. POLYETHYLENE GLYCOLS [Suspect]
     Active Substance: POLYETHYLENE GLYCOLS
     Indication: Constipation
     Dosage: 1-2 SACHETS DAILY IN 2ND AND 3RD TRIMESTERS
  11. DISODIUM HYDROGEN CITRATE\SODIUM LAURYL SULFOACETATE\SORBIC ACID [Suspect]
     Active Substance: DISODIUM HYDROGEN CITRATE\SODIUM LAURYL SULFOACETATE\SORBIC ACID
     Indication: Constipation
     Dosage: 1 DOSAGE FORM, AS NEEDED (1 AS NEEDED RECTALLY 3RD TRIMESTER ONLY)
  12. OMEPRAZOLE [Suspect]
     Active Substance: OMEPRAZOLE
     Indication: Product used for unknown indication
     Dosage: 40 MG DAILY
  13. SENNA [Suspect]
     Active Substance: SENNOSIDES
     Indication: Constipation
     Dosage: 15 MILLIGRAM, AS NEEDED (AT NIGHT WHEN NEEDED IN 1ST AND 3RD TRIMESTER )
  14. ALBUTEROL [Suspect]
     Active Substance: ALBUTEROL
     Indication: Adverse drug reaction
     Dosage: 2 PUFFS, AS NEEDED
  15. AMOXICILLIN [Suspect]
     Active Substance: AMOXICILLIN
     Indication: Upper respiratory tract infection
     Dosage: 1 DOSAGE FORM, THRICE A DAY FOR 1 WEEK
  16. CLOTRIMAZOLE [Suspect]
     Active Substance: CLOTRIMAZOLE
     Indication: Vulvovaginal candidiasis
     Dosage: 200 MILLIGRAM, ONCE A DAY (AT NIGHT FOR 6 NIGHTS IN 2ND AND 3RD TRIMESTERS)
  17. NITROFURANTOIN [Suspect]
     Active Substance: NITROFURANTOIN
     Indication: Product used for unknown indication
     Dosage: IN 1ST TRIMESTER ONLY

REACTIONS (2)
  - Cleft palate [Not Recovered/Not Resolved]
  - Foetal exposure during pregnancy [Unknown]
